FAERS Safety Report 5260711-5 (Version None)
Quarter: 2007Q1

REPORT INFORMATION
  Report Type: 
  Country: None (occurrence: None)
  Receive Date: 20070309
  Receipt Date: 20070109
  Transmission Date: 20070707
  Serious: No
  Sender: FDA-Public Use
  Company Number: US-GLAXOSMITHKLINE-A0634691A

PATIENT
  Age: 62 Year

DRUGS (1)
  1. NICORETTE [Suspect]
     Dates: start: 20070102

REACTIONS (1)
  - NAUSEA [None]
